FAERS Safety Report 5470788-X (Version None)
Quarter: 2007Q3

REPORT INFORMATION
  Report Type: 
  Country: None (occurrence: None)
  Receive Date: 20070928
  Receipt Date: 20070921
  Transmission Date: 20080115
  Serious: Yes (Other)
  Sender: FDA-Public Use
  Company Number: HQWYE904207JUL04

PATIENT
  Sex: Female
  Weight: 65 kg

DRUGS (4)
  1. PREMPRO [Suspect]
  2. PREMPHASE 14/14 [Suspect]
  3. PROVERA [Suspect]
  4. PREMARIN [Suspect]

REACTIONS (1)
  - BREAST CANCER METASTATIC [None]
